FAERS Safety Report 5793053-X (Version None)
Quarter: 2008Q2

REPORT INFORMATION
  Report Type: 
  Country: None (occurrence: None)
  Receive Date: 20080627
  Receipt Date: 20080623
  Transmission Date: 20081010
  Serious: Yes (Other)
  Sender: FDA-Public Use
  Company Number: BR-ALLERGAN-0807691US

PATIENT
  Age: 63 Year
  Sex: Male

DRUGS (5)
  1. ACULAR [Suspect]
     Indication: DRUG USE FOR UNKNOWN INDICATION
     Route: 047
  2. ACULAR [Suspect]
     Indication: POSTOPERATIVE CARE
     Dosage: 1 GTT, TID
     Route: 047
     Dates: start: 20080601
  3. CILODEX [Concomitant]
     Indication: POSTOPERATIVE CARE
     Dosage: 1 GTT, TID
  4. ATROPINA [Concomitant]
     Indication: POSTOPERATIVE CARE
     Dosage: 1 GTT, BID
  5. ALPHAGAN [Concomitant]
     Indication: POSTOPERATIVE CARE
     Dosage: 1 GTT, TID
     Dates: end: 20080601

REACTIONS (5)
  - BLINDNESS UNILATERAL [None]
  - EYE HAEMORRHAGE [None]
  - EYE IRRITATION [None]
  - EYE PAIN [None]
  - OCULAR HYPERAEMIA [None]
